FAERS Safety Report 23796831 (Version 1)
Quarter: 2024Q2

REPORT INFORMATION
  Report Type: Spontaneous
  Country: US (occurrence: US)
  Receive Date: 20240430
  Receipt Date: 20240430
  Transmission Date: 20240716
  Serious: No
  Sender: FDA-Public Use
  Company Number: US-BEH-2024171428

PATIENT
  Age: 75 Year
  Sex: Female
  Weight: 54.422 kg

DRUGS (1)
  1. HIZENTRA [Suspect]
     Active Substance: HUMAN IMMUNOGLOBULIN G
     Indication: Product used for unknown indication
     Dosage: UNK
     Route: 058
     Dates: start: 20240408

REACTIONS (3)
  - Fatigue [Unknown]
  - Incorrect product administration duration [Unknown]
  - Product use issue [Unknown]

NARRATIVE: CASE EVENT DATE: 20240401
